FAERS Safety Report 9198378 (Version 2)
Quarter: 2013Q2

REPORT INFORMATION
  Report Type: Spontaneous
  Country: CA (occurrence: CA)
  Receive Date: 20130329
  Receipt Date: 20130418
  Transmission Date: 20140414
  Serious: Yes (Other)
  Sender: FDA-Public Use
  Company Number: CA-AMGEN-CANSP2013020323

PATIENT
  Age: 86 Year
  Sex: Female
  Weight: 38.1 kg

DRUGS (6)
  1. PROLIA [Suspect]
     Indication: OSTEOPOROSIS POSTMENOPAUSAL
     Dosage: 60 MG, UNK
     Route: 058
     Dates: start: 20130227
  2. COZAAR [Concomitant]
     Indication: HYPERTENSION
     Dosage: 25 UNK, QD
     Route: 048
  3. PLAVIX [Concomitant]
     Indication: TRANSIENT ISCHAEMIC ATTACK
     Dosage: 75 UNK, QD
     Route: 048
  4. LASIX                              /00032601/ [Concomitant]
     Indication: RENAL FAILURE CHRONIC
     Dosage: 20 UNK, QD
     Route: 048
  5. D-TABS [Concomitant]
     Indication: OSTEOPOROSIS
     Dosage: 1000 UNK, QWK
     Route: 048
  6. CAL [Concomitant]
     Indication: OSTEOPOROSIS
     Dosage: 500 UNK, BID
     Route: 048

REACTIONS (8)
  - Blindness [Not Recovered/Not Resolved]
  - Macular degeneration [Not Recovered/Not Resolved]
  - Glaucoma [Not Recovered/Not Resolved]
  - Vision blurred [Recovered/Resolved]
  - Balance disorder [Recovered/Resolved]
  - Head discomfort [Recovered/Resolved]
  - Ear discomfort [Recovered/Resolved]
  - Hypoacusis [Recovered/Resolved]
